FAERS Safety Report 5387484-X (Version None)
Quarter: 2007Q3

REPORT INFORMATION
  Report Type: 
  Country: None (occurrence: None)
  Receive Date: 20070716
  Receipt Date: 20070706
  Transmission Date: 20080115
  Serious: Yes (Life-Threatening, Hospitalization, Disabling)
  Sender: FDA-Public Use
  Company Number: DE-AMGEN-UK229958

PATIENT
  Age: 78 Year
  Sex: Female
  Weight: 61 kg

DRUGS (12)
  1. MIMPARA [Suspect]
     Indication: HYPERPARATHYROIDISM SECONDARY
     Route: 048
     Dates: start: 20060410, end: 20060814
  2. LASIX [Concomitant]
     Route: 048
     Dates: start: 20020510, end: 20060814
  3. ASPIRIN [Concomitant]
     Dates: start: 20020510, end: 20060814
  4. PRAVASTATIN SODIUM [Concomitant]
     Route: 048
     Dates: start: 20031224, end: 20060814
  5. CARVEDILOL [Concomitant]
     Route: 048
     Dates: start: 20060419, end: 20060814
  6. AQUAPHOR [Concomitant]
     Route: 048
     Dates: start: 20020510, end: 20060814
  7. RENAGEL [Concomitant]
     Route: 048
     Dates: start: 20060607, end: 20060814
  8. ROCALTROL [Concomitant]
     Route: 048
     Dates: start: 20060617, end: 20060814
  9. CALCIUM ACETATE [Concomitant]
     Route: 048
     Dates: start: 20060110, end: 20060814
  10. DREISAVIT [Concomitant]
     Route: 048
     Dates: start: 20031224, end: 20060814
  11. ZOLPIDEM TARTRATE [Concomitant]
     Route: 048
     Dates: start: 20050810, end: 20060814
  12. DULCOLAX [Concomitant]
     Route: 048
     Dates: start: 20020613, end: 20060814

REACTIONS (8)
  - BLOOD CULTURE POSITIVE [None]
  - DECREASED APPETITE [None]
  - DIVERTICULUM [None]
  - FATIGUE [None]
  - LARGE INTESTINE PERFORATION [None]
  - PERITONITIS [None]
  - SEPTIC SHOCK [None]
  - WEIGHT DECREASED [None]
